FAERS Safety Report 5140628-7 (Version None)
Quarter: 2006Q4

REPORT INFORMATION
  Report Type: 
  Country: None (occurrence: None)
  Receive Date: 20061020
  Receipt Date: 20061011
  Transmission Date: 20070319
  Serious: Yes (Hospitalization)
  Sender: FDA-Public Use
  Company Number: 2006BH013778

PATIENT
  Age: 59 Year
  Sex: Male
  Weight: 99 kg

DRUGS (3)
  1. GAMMAGARD S/D [Suspect]
     Indication: CHRONIC LYMPHOCYTIC LEUKAEMIA
     Dosage: 30 GM; ONCE; IV
     Route: 042
     Dates: start: 20060828, end: 20060828
  2. SOLU-MEDROL [Concomitant]
  3. POLARAMINE [Concomitant]

REACTIONS (2)
  - CHILLS [None]
  - HYPERTENSION [None]
